FAERS Safety Report 4435185-4 (Version None)
Quarter: 2004Q3

REPORT INFORMATION
  Report Type: 
  Country: None (occurrence: None)
  Receive Date: 20040827
  Receipt Date: 20040628
  Transmission Date: 20050211
  Serious: Yes (Hospitalization)
  Sender: FDA-Public Use
  Company Number: DE-ROCHE-372407

PATIENT
  Age: 81 Year
  Sex: Female
  Weight: 52 kg

DRUGS (4)
  1. PEG-INTERFERON ALFA 2A (RO 25-8310) [Suspect]
     Route: 058
     Dates: start: 20040225
  2. PEG-INTERFERON ALFA 2A (RO 25-8310) [Suspect]
     Route: 058
  3. RIBAVIRIN [Suspect]
     Route: 048
     Dates: start: 20040220, end: 20040501
  4. TRANSTEC [Suspect]
     Route: 065

REACTIONS (7)
  - ANAEMIA [None]
  - APPLICATION SITE REACTION [None]
  - DEHYDRATION [None]
  - DELIRIUM [None]
  - HALLUCINATION [None]
  - PAIN [None]
  - PSYCHOTIC DISORDER [None]
